FAERS Safety Report 6587687-2 (Version None)
Quarter: 2010Q1

REPORT INFORMATION
  Report Type: 
  Country: None (occurrence: None)
  Receive Date: 20100217
  Receipt Date: 20100217
  Transmission Date: 20100710
  Serious: Yes (Hospitalization)
  Sender: FDA-Public Use
  Company Number: None

PATIENT
  Age: 25 Year
  Sex: Male
  Weight: 69.11 kg

DRUGS (1)
  1. CLOZARIL [Suspect]
     Indication: SCHIZOPHRENIA
     Dosage: 150 MG BID PO
     Route: 048
     Dates: start: 20100108, end: 20100114

REACTIONS (4)
  - FEBRILE NEUTROPENIA [None]
  - GRANULOCYTOPENIA [None]
  - OROPHARYNGEAL PAIN [None]
  - PAIN [None]
